FAERS Safety Report 7183140-6 (Version None)
Quarter: 2010Q4

REPORT INFORMATION
  Report Type: 
  Country: None (occurrence: None)
  Receive Date: 20101220
  Receipt Date: 20101220
  Transmission Date: 20110411
  Serious: No
  Sender: FDA-Public Use
  Company Number: None

PATIENT
  Age: 41 Year
  Sex: Female
  Weight: 98 kg

DRUGS (1)
  1. AMOXICILLIN [Suspect]
     Indication: INFECTION
     Dosage: 500 MG TID PO
     Route: 048
     Dates: start: 20101028, end: 20101103

REACTIONS (2)
  - CAPSULE ISSUE [None]
  - DRUG INEFFECTIVE [None]
